FAERS Safety Report 5566306-8 (Version None)
Quarter: 2007Q4

REPORT INFORMATION
  Report Type: 
  Country: None (occurrence: None)
  Receive Date: 20071214
  Receipt Date: 20071203
  Transmission Date: 20080405
  Serious: Yes (Other)
  Sender: FDA-Public Use
  Company Number: 2007337058

PATIENT
  Age: 44 Year
  Sex: Female

DRUGS (1)
  1. PHENYLEPHRINE (PHENYLEPHRINE) [Suspect]
     Dosage: PER DAY, ORAL
     Route: 048

REACTIONS (1)
  - CEREBRAL HAEMORRHAGE [None]
